FAERS Safety Report 16183993 (Version 2)
Quarter: 2019Q2

REPORT INFORMATION
  Report Type: Spontaneous
  Country: DE (occurrence: DE)
  Receive Date: 20190411
  Receipt Date: 20190423
  Transmission Date: 20190711
  Serious: Yes (Other)
  Sender: FDA-Public Use
  Company Number: DE-PFIZER INC-2019157197

PATIENT
  Age: 84 Year
  Sex: Female
  Weight: 59 kg

DRUGS (23)
  1. VALSARTAN. [Suspect]
     Active Substance: VALSARTAN
     Dosage: UNK
     Dates: start: 201808
  2. VALSARTAN. [Suspect]
     Active Substance: VALSARTAN
     Dosage: UNK
     Dates: start: 201810
  3. CLINDAMYCIN RATIOPHARM [Suspect]
     Active Substance: CLINDAMYCIN PHOSPHATE
     Dosage: UNK
     Dates: start: 201704, end: 2017
  4. MIRTAZAPIN [Suspect]
     Active Substance: MIRTAZAPINE
     Dosage: UNK
     Dates: start: 201210, end: 2013
  5. IBUFLAM [IBUPROFEN] [Suspect]
     Active Substance: IBUPROFEN
     Dosage: UNK
     Dates: start: 201704, end: 2017
  6. VALSARTAN. [Suspect]
     Active Substance: VALSARTAN
     Dosage: UNK
     Dates: start: 201202, end: 2014
  7. NIFEDIPIN AL [Suspect]
     Active Substance: NIFEDIPINE
     Dosage: UNK NON AZ PRODUCT
     Dates: start: 201203, end: 2012
  8. BISOHEXAL [Suspect]
     Active Substance: BISOPROLOL FUMARATE
     Dosage: UNK
     Dates: start: 201203
  9. NOVAMINSULFON LICHTENSTEIN [Suspect]
     Active Substance: METAMIZOLE SODIUM
     Dosage: UNK
     Dates: start: 201610, end: 2016
  10. LENDORMIN [Suspect]
     Active Substance: BROTIZOLAM
     Dosage: UNK
     Dates: start: 201211, end: 2017
  11. VALSARTAN. [Suspect]
     Active Substance: VALSARTAN
     Dosage: UNK
     Dates: start: 201807, end: 2018
  12. AMLODIPIN STADA [AMLODIPINE BESILATE] [Suspect]
     Active Substance: AMLODIPINE BESYLATE
     Dosage: UNK NON AZ PRODUCT
     Dates: start: 201203, end: 2012
  13. VALSARTAN. [Suspect]
     Active Substance: VALSARTAN
     Indication: HYPERTENSION
     Dosage: UNK UNK, UNK (HEXAL)
     Dates: start: 201209, end: 2016
  14. NITROLINGUAL [Suspect]
     Active Substance: NITROGLYCERIN
     Dosage: UNK UNK, UNK (AKUT)
     Dates: start: 201203, end: 2017
  15. NIFEDIPIN AL [Suspect]
     Active Substance: NIFEDIPINE
     Dosage: UNK NON AZ PRODUCT
     Dates: start: 201604, end: 2016
  16. RAMIPRIL. [Suspect]
     Active Substance: RAMIPRIL
     Dosage: UNK, UNK NON AZ PRODUCT
     Dates: start: 201606, end: 2016
  17. VALSARTAN. [Suspect]
     Active Substance: VALSARTAN
     Dosage: UNK
     Dates: start: 201610, end: 2018
  18. NIFEDIPIN AL [Suspect]
     Active Substance: NIFEDIPINE
     Dosage: UNK NON AZ PRODUCT
     Dates: start: 201609, end: 2016
  19. BISOHEXAL [Suspect]
     Active Substance: BISOPROLOL FUMARATE
     Dosage: UNK
     Dates: start: 201206, end: 2013
  20. IBUFLAM [IBUPROFEN] [Suspect]
     Active Substance: IBUPROFEN
     Dosage: UNK
     Dates: start: 201211, end: 2012
  21. BELOC ZOK MITE [Suspect]
     Active Substance: METOPROLOL SUCCINATE
     Dosage: UNK
     Route: 048
     Dates: start: 201504, end: 2015
  22. BISOHEXAL [Suspect]
     Active Substance: BISOPROLOL FUMARATE
     Dosage: UNK
     Dates: start: 201203, end: 2018
  23. NITROLINGUAL [Suspect]
     Active Substance: NITROGLYCERIN
     Dosage: UNK
     Dates: start: 201503, end: 2015

REACTIONS (4)
  - Chronic kidney disease [Unknown]
  - Carotid artery disease [Unknown]
  - Normochromic anaemia [Unknown]
  - Hypertension [Unknown]

NARRATIVE: CASE EVENT DATE: 2018
